FAERS Safety Report 9699275 (Version 1)
Quarter: 2013Q4

REPORT INFORMATION
  Report Type: Spontaneous
  Country: US (occurrence: US)
  Receive Date: 20131120
  Receipt Date: 20131120
  Transmission Date: 20140711
  Serious: No
  Sender: FDA-Public Use
  Company Number: US-GILEAD-2008-0015334

PATIENT
  Sex: Female
  Weight: 59.42 kg

DRUGS (18)
  1. LETAIRIS [Suspect]
     Indication: PULMONARY ARTERIAL HYPERTENSION
     Route: 048
  2. SPIRONOLACTONE [Concomitant]
     Dosage: UD
     Route: 048
  3. COUMADIN [Concomitant]
     Dosage: UD
     Route: 048
  4. ACTONEL [Concomitant]
     Dosage: UD
     Route: 048
  5. NEURONTIN [Concomitant]
     Dosage: UD
     Route: 048
  6. FLOVENT [Concomitant]
     Dosage: UD
     Route: 055
  7. IMODIUM [Concomitant]
     Dosage: UD
     Route: 048
  8. RANITIDINE [Concomitant]
     Dosage: UD
     Route: 048
  9. FEXOFENADINE [Concomitant]
     Dosage: UD
     Route: 048
  10. TYLENOL [Concomitant]
     Dosage: UD
     Route: 048
  11. OXYGEN [Concomitant]
     Dosage: UD
     Route: 055
  12. CALCIUM [Concomitant]
     Dosage: UD
     Route: 048
  13. VITAMIN C [Concomitant]
     Dosage: UD
     Route: 048
  14. VITAMIN E [Concomitant]
     Dosage: UD
     Route: 048
  15. MULTIVITAMIN [Concomitant]
     Dosage: UD
     Route: 048
  16. CENTANY [Concomitant]
     Dosage: UD
     Route: 061
  17. BENGAY OINTMENT [Concomitant]
     Dosage: UD
     Route: 061
  18. BL GARLIC [Concomitant]
     Dosage: UD
     Route: 048

REACTIONS (1)
  - Blood cholesterol increased [Unknown]
